FAERS Safety Report 7491387-4 (Version None)
Quarter: 2011Q2

REPORT INFORMATION
  Report Type: 
  Country: None (occurrence: None)
  Receive Date: 20110519
  Receipt Date: 20110506
  Transmission Date: 20111010
  Serious: Yes (Hospitalization, Other)
  Sender: FDA-Public Use
  Company Number: PHEH2008US01437

PATIENT
  Sex: Female

DRUGS (49)
  1. ORPHENADRINE CITRATE [Concomitant]
  2. GABAPENTIN [Concomitant]
  3. HYDROCORTISONE [Concomitant]
     Dosage: 10 MG, BID
  4. DESOXIMETASONE [Concomitant]
  5. DIPHENOXYLATE HCL AND ATROPINE SULFATE [Concomitant]
  6. MEPERIDINE [Concomitant]
  7. TORADOL [Concomitant]
  8. ZOMETA [Suspect]
     Dosage: 3.3 MG, UNK
  9. ACETAMINOPHEN AND HYDROCODONE BITARTRATE [Concomitant]
  10. SULINDAC [Concomitant]
  11. CLINDAMYCIN [Concomitant]
  12. DEPO-MEDROL [Concomitant]
     Dosage: 80 MG, QMO
  13. VICODIN [Concomitant]
  14. OMEPRAZOLE [Concomitant]
  15. NAPROXEN [Concomitant]
  16. AMBIEN [Concomitant]
  17. KEFLEX [Concomitant]
  18. NORVASC [Concomitant]
  19. EFFEXOR [Concomitant]
  20. FLUOXETINE [Concomitant]
  21. QUININE SULFATE [Concomitant]
  22. DAPSONE [Concomitant]
  23. BENICAR [Concomitant]
  24. LISINOPRIL [Concomitant]
  25. TRIAMTERENE AND HYDROCHLOROTHIAZID ^HARRIS^ [Concomitant]
  26. FUROSEMIDE [Concomitant]
  27. COMPAZINE [Concomitant]
  28. PROCHLORPERAZINE TAB [Concomitant]
  29. TRAMADOL HCL [Concomitant]
  30. DIPHENHYDRAMINE HCL [Concomitant]
  31. NEXIUM [Concomitant]
  32. AMOXICILLIN AND CLAVULANATE POTASSIUM [Concomitant]
  33. MECLIZINE [Concomitant]
  34. ARIMIDEX [Concomitant]
  35. ATENOLOL [Concomitant]
  36. SPIRONOLACTONE [Concomitant]
  37. CEPHALEXIN [Concomitant]
  38. MIRAPEX [Concomitant]
  39. ULTRAM [Concomitant]
  40. MOBIC [Concomitant]
  41. PEPCID [Concomitant]
  42. ZOMETA [Suspect]
     Indication: OSTEOPOROSIS
     Dosage: 4 MG, DAILY
     Dates: start: 20050712, end: 20060706
  43. UNIVASC [Concomitant]
  44. CLINORIL [Concomitant]
  45. SUCRALFATE [Concomitant]
  46. MYTUSSIN DAC [Concomitant]
  47. VENLAFAXINE [Concomitant]
  48. VYTONE [Concomitant]
     Dosage: UNK MG, TID
     Route: 061
     Dates: start: 20080123
  49. CHLORDIAZEPOXIDE W/CLIDINIUM BROMIDE [Concomitant]

REACTIONS (46)
  - ROTATOR CUFF SYNDROME [None]
  - ULNAR NEURITIS [None]
  - MUCOSAL INFLAMMATION [None]
  - OBESITY [None]
  - INTERTRIGO [None]
  - WOUND INFECTION PSEUDOMONAS [None]
  - DIVERTICULUM [None]
  - RESORPTION BONE INCREASED [None]
  - ECZEMA [None]
  - CONJUNCTIVOCHALASIS [None]
  - BACK PAIN [None]
  - PYODERMA GANGRENOSUM [None]
  - SKIN ULCER [None]
  - DIARRHOEA [None]
  - GASTRITIS [None]
  - DRY MOUTH [None]
  - DERMATITIS CONTACT [None]
  - OTITIS MEDIA [None]
  - OSTEOPENIA [None]
  - ANKLE FRACTURE [None]
  - GENERAL PHYSICAL HEALTH DETERIORATION [None]
  - LEFT ATRIAL DILATATION [None]
  - PRURITUS [None]
  - ROAD TRAFFIC ACCIDENT [None]
  - FALL [None]
  - DRY EYE [None]
  - ELECTROCARDIOGRAM T WAVE ABNORMAL [None]
  - GASTROOESOPHAGEAL REFLUX DISEASE [None]
  - BONE LOSS [None]
  - CYSTITIS [None]
  - CORNEAL DYSTROPHY [None]
  - JOINT DISLOCATION [None]
  - PAIN [None]
  - SYNCOPE [None]
  - HYPONATRAEMIA [None]
  - MELANOSIS COLI [None]
  - CATARACT [None]
  - JOINT SWELLING [None]
  - BURSITIS [None]
  - OSTEONECROSIS OF JAW [None]
  - ANXIETY [None]
  - MICROANGIOPATHY [None]
  - GLARE [None]
  - VITREOUS FLOATERS [None]
  - ABDOMINAL PAIN [None]
  - ABDOMINAL PAIN LOWER [None]
